FAERS Safety Report 16577317 (Version 1)
Quarter: 2019Q3

REPORT INFORMATION
  Report Type: Report from Study
  Country: BR (occurrence: BR)
  Receive Date: 20190716
  Receipt Date: 20190716
  Transmission Date: 20191004
  Serious: Yes (Other)
  Sender: FDA-Public Use
  Company Number: PHHY2018BR178320

PATIENT
  Sex: Female
  Weight: 62 kg

DRUGS (5)
  1. COSENTYX [Suspect]
     Active Substance: SECUKINUMAB
     Dosage: 300 MG, UNK
     Route: 058
  2. COSENTYX [Suspect]
     Active Substance: SECUKINUMAB
     Dosage: 300 MG, QMO
     Route: 058
     Dates: start: 20180926
  3. COSENTYX [Suspect]
     Active Substance: SECUKINUMAB
     Dosage: 300 MG, QMO
     Route: 058
     Dates: start: 20181213
  4. COSENTYX [Suspect]
     Active Substance: SECUKINUMAB
     Indication: PSORIATIC ARTHROPATHY
     Dosage: UNK
     Route: 058
     Dates: start: 20180909
  5. ETANERCEPT [Concomitant]
     Active Substance: ETANERCEPT
     Indication: PRODUCT USED FOR UNKNOWN INDICATION
     Route: 065

REACTIONS (24)
  - Decreased appetite [Recovering/Resolving]
  - Alopecia [Recovering/Resolving]
  - Skin depigmentation [Unknown]
  - Discomfort [Unknown]
  - Rhinitis [Unknown]
  - Limb injury [Recovering/Resolving]
  - Pain in extremity [Not Recovered/Not Resolved]
  - Weight decreased [Not Recovered/Not Resolved]
  - Vascular pain [Not Recovered/Not Resolved]
  - Inflammation [Not Recovered/Not Resolved]
  - Urinary tract infection [Unknown]
  - Psoriasis [Unknown]
  - Scar [Not Recovered/Not Resolved]
  - Musculoskeletal stiffness [Not Recovered/Not Resolved]
  - Sinusitis [Recovering/Resolving]
  - Urticaria [Unknown]
  - Drug ineffective [Not Recovered/Not Resolved]
  - Nasal congestion [Unknown]
  - Pharyngitis bacterial [Unknown]
  - Arthralgia [Not Recovered/Not Resolved]
  - Headache [Not Recovered/Not Resolved]
  - Incorrect dose administered [Not Recovered/Not Resolved]
  - Suture rupture [Recovering/Resolving]
  - Swelling [Not Recovered/Not Resolved]

NARRATIVE: CASE EVENT DATE: 2018
